FAERS Safety Report 4871993-3 (Version None)
Quarter: 2005Q4

REPORT INFORMATION
  Report Type: 
  Country: None (occurrence: None)
  Receive Date: 20051230
  Receipt Date: 20051215
  Transmission Date: 20060501
  Serious: Yes (Other)
  Sender: FDA-Public Use
  Company Number: US200512003550

PATIENT
  Sex: Male

DRUGS (2)
  1. STRATTERA [Suspect]
  2. CIALIS [Suspect]

REACTIONS (1)
  - SYNCOPE [None]
